FAERS Safety Report 5797627-1 (Version None)
Quarter: 2008Q3

REPORT INFORMATION
  Report Type: 
  Country: None (occurrence: None)
  Receive Date: 20080702
  Receipt Date: 20080624
  Transmission Date: 20090109
  Serious: Yes (Hospitalization)
  Sender: FDA-Public Use
  Company Number: JP-JNJFOC-20080605439

PATIENT
  Sex: Male
  Weight: 75 kg

DRUGS (7)
  1. REMICADE [Suspect]
     Route: 042
  2. REMICADE [Suspect]
     Indication: CROHN'S DISEASE
     Route: 042
  3. PENTASA [Concomitant]
     Indication: GASTRITIS
     Route: 048
  4. ZANTAC [Concomitant]
     Indication: GASTRITIS
     Route: 048
  5. MUCOSTA [Concomitant]
     Indication: GASTRITIS
     Route: 048
  6. BIOFERMIN R [Concomitant]
     Indication: DIARRHOEA
     Route: 048
  7. CYANOCOBALAMIN [Concomitant]
     Indication: NEUROPATHY PERIPHERAL
     Route: 048

REACTIONS (2)
  - HERPES ZOSTER [None]
  - POST HERPETIC NEURALGIA [None]
